FAERS Safety Report 25249568 (Version 2)
Quarter: 2025Q2

REPORT INFORMATION
  Report Type: Spontaneous
  Country: PL (occurrence: PL)
  Receive Date: 20250429
  Receipt Date: 20250502
  Transmission Date: 20250717
  Serious: Yes (Other)
  Sender: AUROBINDO
  Company Number: PL-AUROBINDO-AUR-APL-2025-021854

PATIENT
  Age: 18 Month
  Sex: Female
  Weight: 3.58 kg

DRUGS (2)
  1. AMOXICILLIN [Suspect]
     Active Substance: AMOXICILLIN
     Indication: Respiratory tract infection
     Route: 065
  2. BUDESONIDE [Suspect]
     Active Substance: BUDESONIDE
     Indication: Respiratory tract infection
     Dosage: 250 MICROGRAM, TWO TIMES A DAY

REACTIONS (1)
  - Drug ineffective [Unknown]
